FAERS Safety Report 9463581 (Version 1)
Quarter: 2013Q3

REPORT INFORMATION
  Report Type: Spontaneous
  Country: BR (occurrence: BR)
  Receive Date: 20130819
  Receipt Date: 20130819
  Transmission Date: 20140515
  Serious: Yes (Other)
  Sender: FDA-Public Use
  Company Number: BR-ACCORD-018928

PATIENT
  Age: 51 Year
  Sex: Female
  Weight: 45 kg

DRUGS (7)
  1. PACLITAXEL [Suspect]
     Indication: CHEMOTHERAPY
     Route: 042
     Dates: start: 20130220, end: 20130220
  2. DEXAMETHASONE [Concomitant]
     Route: 042
     Dates: start: 20130220, end: 20130220
  3. ONDANSETRON [Concomitant]
     Route: 042
     Dates: start: 20130220, end: 20130220
  4. RANITIDINE [Concomitant]
     Route: 042
     Dates: start: 20130220, end: 20130220
  5. DIPHENHYDRAMINE [Concomitant]
     Route: 042
     Dates: start: 20130220, end: 20130220
  6. ONDANSETRON [Concomitant]
     Route: 048
     Dates: start: 20130202, end: 20130304
  7. ENALAPRIL [Concomitant]
     Route: 048

REACTIONS (4)
  - Dyspnoea [Recovered/Resolved]
  - Flushing [Recovered/Resolved]
  - Cough [Recovered/Resolved]
  - Hypersensitivity [Recovered/Resolved]
